FAERS Safety Report 18553655 (Version 2)
Quarter: 2020Q4

REPORT INFORMATION
  Report Type: Spontaneous
  Country: JP (occurrence: JP)
  Receive Date: 20201127
  Receipt Date: 20201215
  Transmission Date: 20210114
  Serious: Yes (Other)
  Sender: FDA-Public Use
  Company Number: NVSJ2020JP012572

PATIENT
  Sex: Male

DRUGS (1)
  1. ENERZAIR (MOMETASONE FUROATE\INDACATEROL ACETATE\GLYCOPYRRONIUM BROMIDE) [Suspect]
     Active Substance: GLYCOPYRROLATE\INDACATEROL\MOMETASONE FUROATE
     Indication: ASTHMA
     Dosage: 1DF: INDACATEROL 150UG, GLYCOPYRRONIUM 50UG, MOMETASONE FUROATE 160UG, UNK
     Route: 055
     Dates: start: 20201114

REACTIONS (1)
  - Pneumonia [Recovered/Resolved]

NARRATIVE: CASE EVENT DATE: 20201116
